FAERS Safety Report 8919083 (Version 1)
Quarter: 2012Q4

REPORT INFORMATION
  Report Type: 
  Country: US (occurrence: US)
  Receive Date: 20121121
  Receipt Date: 20121121
  Transmission Date: 20130627
  Serious: No
  Sender: FDA-Public Use
  Company Number: US-ASTRAZENECA-2012SE24589

PATIENT
  Age: 59 Year
  Sex: Male
  Weight: 74.8 kg

DRUGS (6)
  1. NEXIUM [Suspect]
     Indication: GASTROOESOPHAGEAL REFLUX DISEASE
     Route: 048
  2. ZYRTEC [Concomitant]
     Indication: MULTIPLE ALLERGIES
  3. COMBIVENT [Concomitant]
     Indication: BRONCHITIS
  4. COMBIVENT [Concomitant]
     Indication: ASTHMA
  5. DULERA [Concomitant]
     Indication: DYSPNOEA
  6. LORAZEPAM [Concomitant]
     Indication: NERVOUS SYSTEM DISORDER

REACTIONS (1)
  - Dyspnoea exertional [Unknown]
